FAERS Safety Report 7110174-X (Version None)
Quarter: 2010Q4

REPORT INFORMATION
  Report Type: 
  Country: None (occurrence: None)
  Receive Date: 20101118
  Receipt Date: 20101108
  Transmission Date: 20110411
  Serious: Yes (Congenital Anomaly, Other)
  Sender: FDA-Public Use
  Company Number: IT-ELI_LILLY_AND_COMPANY-IT201011003537

PATIENT

DRUGS (1)
  1. TAPAZOLE [Suspect]
     Dosage: UNK, UNK
     Route: 064

REACTIONS (4)
  - CHOANAL ATRESIA [None]
  - CRANIOSYNOSTOSIS [None]
  - DRUG EXPOSURE DURING PREGNANCY [None]
  - LIMB REDUCTION DEFECT [None]
